FAERS Safety Report 14197578 (Version 1)
Quarter: 2017Q4

REPORT INFORMATION
  Report Type: Spontaneous
  Country: FR (occurrence: FR)
  Receive Date: 20171116
  Receipt Date: 20171116
  Transmission Date: 20180321
  Serious: Yes (Hospitalization)
  Sender: FDA-Public Use
  Company Number: FR-MERCK KGAA-2034426

PATIENT

DRUGS (5)
  1. ADVIL [Suspect]
     Active Substance: IBUPROFEN
     Route: 050
     Dates: end: 201707
  2. MIFEGYNE [Suspect]
     Active Substance: MIFEPRISTONE
     Route: 050
     Dates: end: 20170329
  3. VOLTAREN [Suspect]
     Active Substance: DICLOFENAC SODIUM
     Route: 050
     Dates: end: 201707
  4. CYTOTEC [Suspect]
     Active Substance: MISOPROSTOL
     Route: 050
     Dates: end: 20170331
  5. NOVOTHYROX [Suspect]
     Active Substance: LEVOTHYROXINE SODIUM
     Indication: THYROIDECTOMY
     Route: 050

REACTIONS (3)
  - Foetal heart rate disorder [Not Recovered/Not Resolved]
  - Foetal growth restriction [Not Recovered/Not Resolved]
  - Foetal exposure during pregnancy [Unknown]

NARRATIVE: CASE EVENT DATE: 20170703
